FAERS Safety Report 23847847 (Version 1)
Quarter: 2024Q2

REPORT INFORMATION
  Report Type: Spontaneous
  Country: CA (occurrence: CA)
  Receive Date: 20240513
  Receipt Date: 20240513
  Transmission Date: 20240716
  Serious: Yes (Other)
  Sender: FDA-Public Use
  Company Number: CA-PFIZER INC-202400105032

PATIENT
  Age: 31 Year
  Sex: Male
  Weight: 63.492 kg

DRUGS (1)
  1. ABRILADA [Suspect]
     Active Substance: ADALIMUMAB-AFZB
     Indication: Rheumatoid arthritis
     Dosage: 40 MG EVERY 2 WEEKS
     Dates: start: 20230407, end: 202402

REACTIONS (4)
  - Uveitis [Unknown]
  - Cataract [Unknown]
  - Disease recurrence [Unknown]
  - Sarcoidosis [Unknown]
